FAERS Safety Report 9405276 (Version 1)
Quarter: 2013Q3

REPORT INFORMATION
  Report Type: Spontaneous
  Country: ES (occurrence: ES)
  Receive Date: 20130717
  Receipt Date: 20130717
  Transmission Date: 20140515
  Serious: Yes (Death, Other)
  Sender: FDA-Public Use
  Company Number: ES-CELGENEUS-144-50794-13070446

PATIENT
  Age: 78 Year
  Sex: Male

DRUGS (4)
  1. VIDAZA [Suspect]
     Indication: REFRACTORY ANAEMIA WITH AN EXCESS OF BLASTS
     Dosage: 75 MILLIGRAM/SQ. METER
     Route: 041
  2. RED BLOOD CELLS [Concomitant]
     Indication: TRANSFUSION
     Dosage: 6-8 UNITS
     Route: 065
  3. EPO-ALPHA [Concomitant]
     Indication: SUPPORTIVE CARE
     Route: 065
  4. G-CSF [Concomitant]
     Indication: SUPPORTIVE CARE
     Route: 065

REACTIONS (6)
  - Death [Fatal]
  - Platelet count decreased [Recovered/Resolved]
  - Acute myeloid leukaemia [Not Recovered/Not Resolved]
  - Haemorrhage [Not Recovered/Not Resolved]
  - Infection [Not Recovered/Not Resolved]
  - No therapeutic response [Unknown]
